FAERS Safety Report 5301808-0 (Version None)
Quarter: 2007Q2

REPORT INFORMATION
  Report Type: 
  Country: None (occurrence: None)
  Receive Date: 20070419
  Receipt Date: 20070405
  Transmission Date: 20071010
  Serious: Yes (Other)
  Sender: FDA-Public Use
  Company Number: PHRM2007FR01217

PATIENT
  Age: 72 Year
  Sex: Female

DRUGS (11)
  1. EXJADE [Suspect]
     Indication: HAEMOCHROMATOSIS
     Dosage: 2 DF DAILY
     Route: 048
     Dates: start: 20070109, end: 20070125
  2. LEVOTHYROXINE SODIUM [Concomitant]
     Route: 048
  3. CHRONADALATE [Concomitant]
     Route: 048
  4. DIAMICRON [Concomitant]
  5. COAPROVEL [Concomitant]
  6. RIVOTRIL [Concomitant]
     Route: 048
  7. PARACETAMOL [Concomitant]
  8. ENDOTELON [Concomitant]
  9. RUBOZINC [Concomitant]
  10. VITAMIN B1 W/VITAMIN B12 NOS/VITAMIN B6 [Concomitant]
  11. RED BLOOD CELLS [Concomitant]

REACTIONS (2)
  - GASTROINTESTINAL MOTILITY DISORDER [None]
  - PARAESTHESIA [None]
